FAERS Safety Report 9478456 (Version 1)
Quarter: 2013Q3

REPORT INFORMATION
  Report Type: Spontaneous
  Country: US (occurrence: None)
  Receive Date: 20130822
  Receipt Date: 20130822
  Transmission Date: 20140515
  Serious: Yes (Hospitalization)
  Sender: FDA-Public Use
  Company Number: VAL_02691_2013

PATIENT
  Age: 19 Year
  Sex: Female

DRUGS (2)
  1. METHYLERGOMETRINE [Suspect]
     Indication: UTERINE ATONY
     Dosage: ACCIDENTAL INJESTED
     Route: 048
  2. RODENTICIDE [Suspect]

REACTIONS (12)
  - Exposure during pregnancy [None]
  - Haemoglobin decreased [None]
  - Prothrombin time prolonged [None]
  - International normalised ratio increased [None]
  - Haematuria [None]
  - Mouth haemorrhage [None]
  - Caesarean section [None]
  - Accidental poisoning [None]
  - Vaginal haemorrhage [None]
  - Disseminated intravascular coagulation [None]
  - Premature separation of placenta [None]
  - Premature delivery [None]
